FAERS Safety Report 7209115-6 (Version None)
Quarter: 2011Q1

REPORT INFORMATION
  Report Type: 
  Country: None (occurrence: None)
  Receive Date: 20110104
  Receipt Date: 20110104
  Transmission Date: 20110831
  Serious: Yes (Other)
  Sender: FDA-Public Use
  Company Number: None

PATIENT
  Sex: Male
  Weight: 60.2377 kg

DRUGS (4)
  1. TUBERCULIN, PURIFIED PROTEIN DERIVATIVE, DILUTED 5 TU/0.1 ML JHP PHARM [Suspect]
     Indication: HIV INFECTION
     Dosage: 0.1 ML ONCE INTRADERMAL 12/31/10 1600
     Route: 023
     Dates: start: 20101231
  2. PNEUMOCOCCAL VAC POLYVALENT PNEUMOVAX [Concomitant]
  3. DEVAVAC [Concomitant]
  4. INFLUENZA VAC. FLULAVAL [Concomitant]

REACTIONS (2)
  - BLISTER [None]
  - ERYTHEMA [None]
